FAERS Safety Report 20648221 (Version 1)
Quarter: 2022Q1

REPORT INFORMATION
  Report Type: Spontaneous
  Country: US (occurrence: None)
  Receive Date: 20220328
  Receipt Date: 20220328
  Transmission Date: 20220423
  Serious: Yes (Other)
  Sender: FDA-Public Use
  Company Number: None

PATIENT
  Age: 56 Year
  Sex: Female

DRUGS (5)
  1. ZEJULA [Suspect]
     Active Substance: NIRAPARIB
     Indication: Fallopian tube cancer
     Dosage: OTHER FREQUENCY : 2 CAPS, 1X A DAY;?
     Route: 048
     Dates: start: 20220322
  2. ZEJULA [Suspect]
     Active Substance: NIRAPARIB
     Indication: Metastases to liver
  3. ZEJULA [Suspect]
     Active Substance: NIRAPARIB
     Indication: Cholangiocarcinoma
  4. ZEJULA [Suspect]
     Active Substance: NIRAPARIB
     Indication: Retroperitoneal cancer
  5. ZEJULA [Suspect]
     Active Substance: NIRAPARIB
     Indication: Malignant peritoneal neoplasm

REACTIONS (1)
  - Therapy non-responder [None]

NARRATIVE: CASE EVENT DATE: 20220322
